FAERS Safety Report 6370803-5 (Version None)
Quarter: 2009Q3

REPORT INFORMATION
  Report Type: 
  Country: None (occurrence: None)
  Receive Date: 20090923
  Receipt Date: 20070918
  Transmission Date: 20100115
  Serious: Yes (Hospitalization)
  Sender: FDA-Public Use
  Company Number: US-ASTRAZENECA-2006UW23954

PATIENT
  Age: 11891 Day
  Sex: Male
  Weight: 104.3 kg

DRUGS (14)
  1. SEROQUEL [Suspect]
     Route: 048
     Dates: start: 20040722
  2. ZYPREXA [Suspect]
     Dosage: 5 - 15 MG DAILY
     Dates: start: 20031110
  3. ALBUTEROL [Concomitant]
     Dosage: 90 MCG, AER
     Dates: start: 20020103
  4. ADVAIR DISKUS 100/50 [Concomitant]
     Dosage: 500 / 50 MIS
     Dates: start: 20020103
  5. PAXIL [Concomitant]
     Dates: start: 20020103
  6. PROTONIX [Concomitant]
     Dates: start: 20020103
  7. CLONAZEPAM [Concomitant]
     Indication: SLEEP DISORDER
     Dosage: 1 - 4 MG DAILY
     Dates: start: 20020103
  8. RISPERDAL [Concomitant]
     Dosage: 1 - 2 MG DAILY
     Dates: start: 20041204
  9. PHENERGAN [Concomitant]
     Dates: start: 20041003
  10. HYDROXYZINE [Concomitant]
     Dates: start: 20040126
  11. NEXIUM [Concomitant]
  12. GEMFIBROZIL [Concomitant]
     Dates: start: 20041003
  13. NAPROXEN [Concomitant]
     Dates: start: 20040830
  14. GABITRIL [Concomitant]
     Dates: start: 20031109

REACTIONS (3)
  - DIABETES MELLITUS [None]
  - PANCREATITIS ACUTE [None]
  - TYPE 2 DIABETES MELLITUS [None]
